FAERS Safety Report 18637771 (Version 1)
Quarter: 2020Q4

REPORT INFORMATION
  Report Type: Spontaneous
  Country: US (occurrence: US)
  Receive Date: 20201218
  Receipt Date: 20201218
  Transmission Date: 20210114
  Serious: No
  Sender: FDA-Public Use
  Company Number: US-ASTRAZENECA-2020SF56960

PATIENT
  Sex: Female
  Weight: 90.7 kg

DRUGS (7)
  1. PEPCID [Concomitant]
     Active Substance: FAMOTIDINE
  2. ALLEGRA [Concomitant]
     Active Substance: FEXOFENADINE HYDROCHLORIDE
  3. SYMBICORT [Suspect]
     Active Substance: BUDESONIDE\FORMOTEROL FUMARATE DIHYDRATE
     Indication: WHEEZING
     Dosage: 160/4.5 MCG ONE PUFF AT NIGHT
     Route: 055
  4. ALBUTEROL. [Concomitant]
     Active Substance: ALBUTEROL
  5. FLONASE [Concomitant]
     Active Substance: FLUTICASONE PROPIONATE
  6. BENADRYL [Concomitant]
     Active Substance: DIPHENHYDRAMINE HYDROCHLORIDE
  7. SYMBICORT [Suspect]
     Active Substance: BUDESONIDE\FORMOTEROL FUMARATE DIHYDRATE
     Indication: ASTHMA
     Dosage: 160/4.5 MCG ONE PUFF AT NIGHT
     Route: 055

REACTIONS (4)
  - Ill-defined disorder [Unknown]
  - Wheezing [Unknown]
  - Intentional product misuse [Unknown]
  - Lacrimation increased [Unknown]
